FAERS Safety Report 5528690-0 (Version None)
Quarter: 2007Q4

REPORT INFORMATION
  Report Type: 
  Country: None (occurrence: None)
  Receive Date: 20071113
  Receipt Date: 20070607
  Transmission Date: 20080405
  Serious: Yes (Other)
  Sender: FDA-Public Use
  Company Number: 2007047165

PATIENT
  Age: 52 Year
  Sex: Female

DRUGS (1)
  1. DOXYCYCLINE [Suspect]
     Indication: LUNG INFECTION
     Dates: start: 20050101, end: 20050101

REACTIONS (1)
  - WHITE BLOOD CELL COUNT DECREASED [None]
